FAERS Safety Report 7466785-5 (Version None)
Quarter: 2011Q2

REPORT INFORMATION
  Report Type: 
  Country: None (occurrence: None)
  Receive Date: 20110509
  Receipt Date: 20100831
  Transmission Date: 20111010
  Serious: No
  Sender: FDA-Public Use
  Company Number: US-ALEXION-A201001111

PATIENT
  Sex: Male

DRUGS (9)
  1. LASIX [Concomitant]
     Indication: FLUID RETENTION
     Dosage: 40 MG, QD
     Route: 048
  2. LYRICA [Concomitant]
     Indication: NERVE INJURY
     Dosage: 100 MG, TID
     Route: 048
     Dates: start: 20040101
  3. MS CONTIN [Concomitant]
     Indication: PAIN
     Dosage: 75 MG, QD
     Route: 048
  4. SOLIRIS [Suspect]
     Dosage: 900 MG, Q12DAYS
     Route: 042
     Dates: start: 20060101
  5. PREDNISONE [Concomitant]
     Dosage: 2 MG, QAM
     Route: 048
  6. ASPIRIN [Concomitant]
     Indication: ANTICOAGULANT THERAPY
     Dosage: 1
     Route: 048
  7. SOLIRIS [Suspect]
     Indication: PAROXYSMAL NOCTURNAL HAEMOGLOBINURIA
     Dosage: UNK
     Route: 042
     Dates: start: 20050101
  8. EFFEXOR [Concomitant]
     Indication: DEPRESSION
     Dosage: 75 MG, 3 TABLETS UNK
     Route: 048
  9. ADVAIR DISKUS 100/50 [Concomitant]
     Indication: ASTHMA
     Dosage: 500/50 MG
     Route: 055

REACTIONS (1)
  - MIGRAINE [None]
